FAERS Safety Report 10331048 (Version 3)
Quarter: 2014Q4

REPORT INFORMATION
  Report Type: Report from Study
  Country: PT (occurrence: PT)
  Receive Date: 20140722
  Receipt Date: 20141023
  Transmission Date: 20150528
  Serious: Yes (Hospitalization, Other)
  Sender: FDA-Public Use
  Company Number: PT-ASTELLAS-2014US008299

PATIENT
  Age: 48 Year
  Sex: Male

DRUGS (2)
  1. ERLOTINIB [Suspect]
     Active Substance: ERLOTINIB
     Indication: NON-SMALL CELL LUNG CANCER
     Route: 048
     Dates: start: 20121128, end: 20140512
  2. ERLOTINIB [Suspect]
     Active Substance: ERLOTINIB
     Indication: ADENOCARCINOMA

REACTIONS (10)
  - Drug ineffective [Unknown]
  - Cough [Unknown]
  - Tracheobronchitis [Unknown]
  - Dyspnoea [Unknown]
  - Tracheobronchitis [Recovered/Resolved]
  - Rash [Recovered/Resolved]
  - Upper respiratory tract infection [Recovered/Resolved]
  - Respiratory failure [Not Recovered/Not Resolved]
  - Tumour associated fever [Recovered/Resolved]
  - Malignant neoplasm progression [Not Recovered/Not Resolved]

NARRATIVE: CASE EVENT DATE: 20120421
